FAERS Safety Report 9236385 (Version 1)
Quarter: 2013Q2

REPORT INFORMATION
  Report Type: Spontaneous
  Country: US (occurrence: US)
  Receive Date: 20130417
  Receipt Date: 20130417
  Transmission Date: 20140414
  Serious: No
  Sender: FDA-Public Use
  Company Number: US-TEVA-397503USA

PATIENT
  Sex: Female

DRUGS (1)
  1. QNASL [Suspect]
     Dates: end: 201304

REACTIONS (4)
  - Vaginitis bacterial [Unknown]
  - Asthenia [Unknown]
  - Pain [Unknown]
  - Gait disturbance [Unknown]
